FAERS Safety Report 18257692 (Version 2)
Quarter: 2024Q2

REPORT INFORMATION
  Report Type: Spontaneous
  Country: IT (occurrence: IT)
  Receive Date: 20200911
  Receipt Date: 20240612
  Transmission Date: 20240716
  Serious: Yes (Hospitalization)
  Sender: FDA-Public Use
  Company Number: IT-009507513-1608ITA005686

PATIENT
  Age: 0 Year
  Sex: Male
  Weight: 2.4 kg

DRUGS (7)
  1. RALTEGRAVIR POTASSIUM [Suspect]
     Active Substance: RALTEGRAVIR POTASSIUM
     Indication: HIV infection
     Dosage: 6 MG/KG, TWICE DAILY, GIVEN AS A POWDER TO BE SUSPENDED IN WATER PREPARED FROM 400 MG TABLETS
     Route: 048
     Dates: start: 20130628, end: 20130725
  2. RALTEGRAVIR POTASSIUM [Suspect]
     Active Substance: RALTEGRAVIR POTASSIUM
     Dosage: 40 MG TWICE DAILY
     Route: 048
     Dates: start: 201402
  3. ZIDOVUDINE [Concomitant]
     Active Substance: ZIDOVUDINE
     Indication: Antiretroviral therapy
     Dosage: TOTAL DAILY DOSE 24 MG/KG
     Route: 048
     Dates: start: 20130627, end: 20130630
  4. LAMIVUDINE [Concomitant]
     Active Substance: LAMIVUDINE
     Indication: Antiretroviral therapy
     Dosage: 4 MG/KG, BID
     Route: 048
     Dates: start: 20130627
  5. LOPINAVIR\RITONAVIR [Concomitant]
     Active Substance: LOPINAVIR\RITONAVIR
     Indication: Antiretroviral therapy
     Dosage: 16 MG/4 MG, BID
     Route: 048
     Dates: start: 20130627, end: 20130807
  6. ABACAVIR [Concomitant]
     Active Substance: ABACAVIR
     Indication: Antiretroviral therapy
     Dosage: 8 MG/KG, BID
     Route: 048
     Dates: start: 20130701
  7. NEVIRAPINE [Concomitant]
     Active Substance: NEVIRAPINE
     Indication: Antiretroviral therapy
     Dosage: 7 MG/KG, BID
     Route: 048
     Dates: start: 20130709, end: 20130729

REACTIONS (2)
  - Gamma-glutamyltransferase increased [Recovered/Resolved]
  - Off label use [Unknown]

NARRATIVE: CASE EVENT DATE: 20130628
